FAERS Safety Report 6976999-6 (Version None)
Quarter: 2010Q3

REPORT INFORMATION
  Report Type: 
  Country: None (occurrence: None)
  Receive Date: 20100910
  Receipt Date: 20100831
  Transmission Date: 20110219
  Serious: Yes (Hospitalization)
  Sender: FDA-Public Use
  Company Number: JP-AMGEN-US399855

PATIENT
  Sex: Female

DRUGS (11)
  1. ENBREL [Suspect]
     Indication: RHEUMATOID ARTHRITIS
     Route: 058
     Dates: start: 20060313, end: 20060502
  2. ENBREL [Suspect]
     Route: 058
     Dates: start: 20060502, end: 20091027
  3. ENBREL [Suspect]
     Route: 058
  4. ENBREL [Suspect]
     Route: 058
     Dates: end: 20091027
  5. METHOTREXATE [Concomitant]
  6. LANSOPRAZOLE [Concomitant]
     Dosage: (15) 1 TABLET; UNSPECIFIED FREQUENCY
     Route: 048
  7. BUCILLAMINE [Concomitant]
     Dosage: (100) 1 TABLET; UNSPECIFIED FREQUENCY
     Route: 048
  8. LOXOPROFEN SODIUM [Concomitant]
     Dosage: (60) 2 TABLETS IN TWO DIVIDED ODSES
     Route: 048
  9. PYRIDOXAL PHOSPHATE [Concomitant]
     Dosage: (20) 1 TABLET; UNSPCIFIED FREQUENCY
     Route: 048
  10. ISCOTIN [Concomitant]
     Indication: ANTIBIOTIC PROPHYLAXIS
     Route: 048
     Dates: start: 20060302, end: 20060905
  11. FOLIC ACID [Concomitant]

REACTIONS (4)
  - DRUG EXPOSURE DURING PREGNANCY [None]
  - INTRAUTERINE INFECTION [None]
  - PREMATURE LABOUR [None]
  - THREATENED LABOUR [None]
